FAERS Safety Report 6388806-3 (Version None)
Quarter: 2009Q4

REPORT INFORMATION
  Report Type: 
  Country: None (occurrence: None)
  Receive Date: 20091005
  Receipt Date: 20090928
  Transmission Date: 20100525
  Serious: Yes (Hospitalization)
  Sender: FDA-Public Use
  Company Number: JP-ALLERGAN-0913575US

PATIENT
  Age: 4 Year
  Sex: Female

DRUGS (1)
  1. BOTOX [Suspect]
     Indication: TORTICOLLIS
     Dosage: 40 UNITS, SINGLE
     Route: 030
     Dates: start: 20090924, end: 20090924

REACTIONS (5)
  - ASTHENIA [None]
  - DYSURIA [None]
  - GASTROINTESTINAL DISORDER [None]
  - PYREXIA [None]
  - VOMITING [None]
